FAERS Safety Report 12658184 (Version 1)
Quarter: 2016Q3

REPORT INFORMATION
  Report Type: Spontaneous
  Country: US (occurrence: US)
  Receive Date: 20160817
  Receipt Date: 20160817
  Transmission Date: 20161109
  Serious: No
  Sender: FDA-Public Use
  Company Number: US-ASTRAZENECA-2016SE81805

PATIENT
  Age: 1386 Week
  Sex: Female
  Weight: 55.8 kg

DRUGS (3)
  1. CLARITN [Concomitant]
     Indication: MULTIPLE ALLERGIES
     Route: 048
  2. PULMICORT FLEXHALER [Suspect]
     Active Substance: BUDESONIDE
     Indication: ASTHMA
     Dosage: 90 MCG, 2 PUFFS, TWICE A DAY
     Route: 055
     Dates: start: 20160726
  3. PROAIR HFA [Concomitant]
     Active Substance: ALBUTEROL SULFATE
     Indication: ASTHMA
     Route: 055

REACTIONS (5)
  - Drug dose omission [Unknown]
  - Nasopharyngitis [Unknown]
  - Exposure during pregnancy [Unknown]
  - Asthma [Unknown]
  - Product quality issue [Unknown]

NARRATIVE: CASE EVENT DATE: 20160726
